FAERS Safety Report 19191462 (Version 1)
Quarter: 2021Q2

REPORT INFORMATION
  Report Type: Spontaneous
  Country: US (occurrence: US)
  Receive Date: 20210428
  Receipt Date: 20210428
  Transmission Date: 20210717
  Serious: Yes (Other)
  Sender: FDA-Public Use
  Company Number: US-GLAXOSMITHKLINE-USCH2021022440

PATIENT
  Age: 66 Year
  Sex: Female

DRUGS (1)
  1. PREPARATION H RAPID RELIEF [Suspect]
     Active Substance: GLYCERIN\LIDOCAINE
     Indication: PRODUCT USED FOR UNKNOWN INDICATION
     Dosage: UNK
     Dates: start: 20210422

REACTIONS (3)
  - Haemorrhage [Unknown]
  - Wrong technique in product usage process [Unknown]
  - Wound [Unknown]

NARRATIVE: CASE EVENT DATE: 20210422
